FAERS Safety Report 8255259-X (Version None)
Quarter: 2012Q2

REPORT INFORMATION
  Report Type: 
  Country: None (occurrence: None)
  Receive Date: 20120403
  Receipt Date: 20120323
  Transmission Date: 20120825
  Serious: Yes (Hospitalization)
  Sender: FDA-Public Use
  Company Number: US-CELGENEUS-163-21880-12022849

PATIENT
  Sex: Female

DRUGS (10)
  1. CALCIUM CARBONATE [Concomitant]
     Dosage: 500 MILLIGRAM
     Route: 048
  2. LEVOTHYROXINE SODIUM [Concomitant]
     Dosage: .125 MILLIGRAM
     Route: 048
  3. FLUIDS [Concomitant]
     Route: 041
  4. DIOVAN [Concomitant]
     Dosage: 160 MILLIGRAM
     Route: 048
  5. VITAMIN D [Concomitant]
     Dosage: 1000 UNITS
     Route: 048
  6. COUMADIN [Concomitant]
     Route: 065
  7. MICRO-K [Concomitant]
     Dosage: 10 MILLIEQUIVALENTS
     Route: 048
  8. REVLIMID [Suspect]
     Indication: MYELODYSPLASTIC SYNDROME
     Dosage: 5 MILLIGRAM
     Route: 048
     Dates: start: 20060501
  9. ASPIRIN [Concomitant]
     Dosage: 81 MILLIGRAM
     Route: 048
  10. VITAMIN B-12 [Concomitant]
     Indication: SUPPLEMENTATION THERAPY
     Route: 065

REACTIONS (5)
  - MALAISE [None]
  - ANAEMIA [None]
  - DYSKINESIA [None]
  - HAEMATOCHEZIA [None]
  - RENAL FAILURE ACUTE [None]
